FAERS Safety Report 23032598 (Version 2)
Quarter: 2023Q4

REPORT INFORMATION
  Report Type: Spontaneous
  Country: CA (occurrence: CA)
  Receive Date: 20231005
  Receipt Date: 20231205
  Transmission Date: 20240109
  Serious: Yes (Hospitalization)
  Sender: FDA-Public Use
  Company Number: CA-PFIZER INC-202200731225

PATIENT
  Age: 61 Year
  Sex: Female

DRUGS (4)
  1. RUXIENCE [Suspect]
     Active Substance: RITUXIMAB-PVVR
     Indication: Dermatomyositis
     Dosage: 1000 MG, DAY 1 AND DAY 15 THEN EVERY 4 MONTHS
     Route: 042
     Dates: start: 20220812
  2. RUXIENCE [Suspect]
     Active Substance: RITUXIMAB-PVVR
     Dosage: 1000 MG, DAY 1
     Route: 042
     Dates: start: 20230510
  3. RUXIENCE [Suspect]
     Active Substance: RITUXIMAB-PVVR
     Dosage: 1000 MG, DAY 1 AND DAY 15 AT EVERY 4 MONTHS (4 MONTHS AND 15 DAYS)
     Route: 042
     Dates: start: 20230925
  4. RUXIENCE [Suspect]
     Active Substance: RITUXIMAB-PVVR
     Dosage: 1000 MG, DAY 1 AND DAY 15 AT EVERY 4 MONTHS
     Route: 042
     Dates: start: 20231010

REACTIONS (9)
  - COVID-19 [Unknown]
  - Gastrointestinal disorder [Recovered/Resolved]
  - Headache [Not Recovered/Not Resolved]
  - Chills [Not Recovered/Not Resolved]
  - Abdominal pain upper [Not Recovered/Not Resolved]
  - Vomiting [Not Recovered/Not Resolved]
  - Nausea [Not Recovered/Not Resolved]
  - Pyrexia [Recovered/Resolved]
  - Off label use [Unknown]

NARRATIVE: CASE EVENT DATE: 20220812
